FAERS Safety Report 6222406-0 (Version None)
Quarter: 2009Q2

REPORT INFORMATION
  Report Type: 
  Country: None (occurrence: None)
  Receive Date: 20090608
  Receipt Date: 20090529
  Transmission Date: 20091009
  Serious: Yes (Hospitalization)
  Sender: FDA-Public Use
  Company Number: CA-GENENTECH-284169

PATIENT
  Age: 54 Year
  Sex: Female

DRUGS (4)
  1. RITUXAN [Suspect]
     Indication: TRANSPLANT REJECTION
     Dosage: 375 MG/M2, SINGLE
  2. PREDNISONE [Concomitant]
     Indication: IMMUNOSUPPRESSION
     Dosage: 5 MG, QD
  3. TACROLIMUS [Concomitant]
     Indication: IMMUNOSUPPRESSION
  4. MYCOPHENOLATE MOFETIL [Concomitant]
     Indication: IMMUNOSUPPRESSION
     Dosage: 1750 MG, QD

REACTIONS (1)
  - PNEUMOCYSTIS JIROVECI PNEUMONIA [None]
